FAERS Safety Report 6253128-8 (Version None)
Quarter: 2009Q3

REPORT INFORMATION
  Report Type: 
  Country: None (occurrence: None)
  Receive Date: 20090701
  Receipt Date: 20090623
  Transmission Date: 20100115
  Serious: Yes (Hospitalization, Other)
  Sender: FDA-Public Use
  Company Number: US-BAYER-200922180NA

PATIENT
  Age: 63 Year
  Sex: Female

DRUGS (1)
  1. NEXAVAR [Suspect]
     Indication: HEPATIC NEOPLASM MALIGNANT
     Dosage: TOTAL DAILY DOSE: 400 MG  UNIT DOSE: 200 MG
     Route: 048
     Dates: start: 20090504, end: 20090530

REACTIONS (9)
  - ASTHENIA [None]
  - DRY SKIN [None]
  - HYPERKERATOSIS [None]
  - MENTAL STATUS CHANGES [None]
  - PAIN IN EXTREMITY [None]
  - PARAESTHESIA [None]
  - SKIN EXFOLIATION [None]
  - SOMNOLENCE [None]
  - WEIGHT DECREASED [None]
